FAERS Safety Report 9507127 (Version 1)
Quarter: 2013Q1

REPORT INFORMATION
  Report Type: Spontaneous
  Country: US (occurrence: None)
  Receive Date: 20130305
  Receipt Date: 20130305
  Transmission Date: 20140127
  Serious: Yes (Other)
  Sender: FDA-Public Use
  Company Number: 163-21880-12050578

PATIENT
  Age: 74 Year
  Sex: Male
  Weight: 74.84 kg

DRUGS (8)
  1. REVLIMID [Suspect]
     Indication: MYELODYSPLASTIC SYNDROME
     Dosage: 5 MG, DAYS 1-28 / 28, PO
     Route: 048
     Dates: start: 201108
  2. LEVOTHYROXINE (LEVOTHYROXINE) [Concomitant]
  3. CARBIDOPA / LEVODOPA / ENTACAPONE (STALEVO) [Concomitant]
  4. SILODOSIN (SILODOSIN) [Concomitant]
  5. MIDODRINE (MODORINE) [Concomitant]
  6. HYDROXYCHLOROQUINE (HYDROXYCHLOROQUINE) [Concomitant]
  7. RIVASTIGMINE (RIVASTIGMINE) [Concomitant]
  8. SALASLATE (SALASLATE) [Concomitant]

REACTIONS (2)
  - Full blood count decreased [None]
  - No therapeutic response [None]
